FAERS Safety Report 11316764 (Version 1)
Quarter: 2015Q3

REPORT INFORMATION
  Report Type: Spontaneous
  Country: AU (occurrence: None)
  Receive Date: 20150724
  Receipt Date: 20150724
  Transmission Date: 20151125
  Serious: Yes (Life-Threatening, Hospitalization)
  Sender: FDA-Public Use
  Company Number: IPC201507-000465

PATIENT
  Age: 44 Year
  Sex: Male

DRUGS (3)
  1. GLICLAZIDE (GLICLAZIDE) [Suspect]
     Active Substance: GLICLAZIDE
     Indication: TYPE 2 DIABETES MELLITUS
     Dosage: ONCE DAILY MODIFIED
  2. METFORMIN HYDROCHLORIDE. [Suspect]
     Active Substance: METFORMIN HYDROCHLORIDE
     Indication: TYPE 2 DIABETES MELLITUS
  3. EXENATIDE (EXENATIDE) [Concomitant]
     Active Substance: EXENATIDE

REACTIONS (22)
  - Tachyarrhythmia [None]
  - Respiratory failure [None]
  - Vasoplegia syndrome [None]
  - Acute kidney injury [None]
  - Anion gap increased [None]
  - Encephalopathy [None]
  - Ejection fraction decreased [None]
  - Hypoglycaemia [None]
  - Haemodialysis [None]
  - Acute lung injury [None]
  - Right ventricular dysfunction [None]
  - Intentional overdose [None]
  - Legal problem [None]
  - Vomiting [None]
  - Respiratory gas exchange disorder [None]
  - Lung infiltration [None]
  - Shock [None]
  - Fluid overload [None]
  - Acute respiratory distress syndrome [None]
  - Metabolic acidosis [None]
  - Abdominal pain [None]
  - Lactic acidosis [None]
